FAERS Safety Report 16073370 (Version 2)
Quarter: 2019Q1

REPORT INFORMATION
  Report Type: Report from Study
  Country: IL (occurrence: IL)
  Receive Date: 20190314
  Receipt Date: 20190320
  Transmission Date: 20190418
  Serious: Yes (Death, Hospitalization)
  Sender: FDA-Public Use
  Company Number: IL-ACTELION-A-CH2019-184466

PATIENT
  Age: 73 Year
  Sex: Female

DRUGS (19)
  1. UPTRAVI [Suspect]
     Active Substance: SELEXIPAG
     Dosage: 400 + 200 MCG, QD
     Route: 048
  2. UPTRAVI [Suspect]
     Active Substance: SELEXIPAG
     Dosage: UNK
     Route: 048
     Dates: start: 20190213
  3. PAPAVERINE HYDROCHLORIDE. [Concomitant]
     Active Substance: PAPAVERINE HYDROCHLORIDE
  4. PREDNISONE. [Concomitant]
     Active Substance: PREDNISONE
  5. UPTRAVI [Suspect]
     Active Substance: SELEXIPAG
     Indication: PULMONARY ARTERIAL HYPERTENSION
     Dosage: 400 MCG, BID
     Route: 048
     Dates: start: 20181209
  6. UPTRAVI [Suspect]
     Active Substance: SELEXIPAG
     Dosage: 400 MCG, BID
     Route: 049
     Dates: start: 201902, end: 20190312
  7. ASPIRIN. [Concomitant]
     Active Substance: ASPIRIN
  8. REVATIO [Concomitant]
     Active Substance: SILDENAFIL CITRATE
  9. OPTALGIN [Concomitant]
     Active Substance: METAMIZOLE
  10. OPSUMIT [Suspect]
     Active Substance: MACITENTAN
     Indication: PULMONARY ARTERIAL HYPERTENSION
     Dosage: 10 MG, QD
     Route: 049
     Dates: start: 2017
  11. ALDACTONE [Concomitant]
     Active Substance: SPIRONOLACTONE
  12. LOSEC [Concomitant]
     Active Substance: OMEPRAZOLE
  13. FUSID [Concomitant]
  14. PLAQUENIL [Concomitant]
     Active Substance: HYDROXYCHLOROQUINE SULFATE
  15. LIPITOR [Concomitant]
     Active Substance: ATORVASTATIN CALCIUM
  16. ACAMOL [Concomitant]
     Active Substance: ACETAMINOPHEN
  17. UPTRAVI [Suspect]
     Active Substance: SELEXIPAG
     Dosage: 400 MCG, BID
     Route: 048
  18. UPTRAVI [Suspect]
     Active Substance: SELEXIPAG
     Dosage: 600 MCG, BID
     Route: 048
     Dates: start: 20190130, end: 20190206
  19. UPTRAVI [Suspect]
     Active Substance: SELEXIPAG
     Dosage: 800 MCG, BID
     Route: 048
     Dates: start: 20190218

REACTIONS (14)
  - Diarrhoea [Recovered/Resolved]
  - Incorrect route of product administration [Unknown]
  - Concomitant disease aggravated [Fatal]
  - Renal failure [Fatal]
  - Malnutrition [Fatal]
  - Dialysis [Not Recovered/Not Resolved]
  - Gastrointestinal tube insertion [Not Recovered/Not Resolved]
  - Pulmonary arterial hypertension [Fatal]
  - Erythema [Recovered/Resolved]
  - Condition aggravated [Fatal]
  - Oedema peripheral [Recovered/Resolved]
  - Wrong technique in product usage process [Unknown]
  - Abdominal pain [Recovered/Resolved]
  - Myalgia [Recovered/Resolved]

NARRATIVE: CASE EVENT DATE: 20181226
